FAERS Safety Report 22324164 (Version 1)
Quarter: 2023Q2

REPORT INFORMATION
  Report Type: Spontaneous
  Country: US (occurrence: US)
  Receive Date: 20230516
  Receipt Date: 20230516
  Transmission Date: 20230722
  Serious: Yes (Hospitalization, Other)
  Sender: FDA-Public Use
  Company Number: US-GILEAD-2023-0628213

PATIENT
  Age: 72 Year
  Sex: Male

DRUGS (1)
  1. YESCARTA [Suspect]
     Active Substance: AXICABTAGENE CILOLEUCEL
     Indication: Product used for unknown indication
     Dosage: 68 ML
     Route: 042
     Dates: start: 20230328, end: 20230328

REACTIONS (1)
  - Immune effector cell-associated neurotoxicity syndrome [Recovered/Resolved]

NARRATIVE: CASE EVENT DATE: 20230407
